FAERS Safety Report 6254656-1 (Version None)
Quarter: 2009Q3

REPORT INFORMATION
  Report Type: 
  Country: None (occurrence: None)
  Receive Date: 20090702
  Receipt Date: 20090625
  Transmission Date: 20100115
  Serious: Yes (Hospitalization)
  Sender: FDA-Public Use
  Company Number: B0580642A

PATIENT
  Sex: Female

DRUGS (16)
  1. AMOXICILLIN TRIHYDRATE [Suspect]
     Indication: NASOPHARYNGITIS
     Dosage: 500MG FOUR TIMES PER DAY
     Route: 048
     Dates: start: 20090406, end: 20090413
  2. NUREFLEX [Suspect]
     Indication: NASOPHARYNGITIS
     Dosage: 400MG THREE TIMES PER DAY
     Route: 048
     Dates: start: 20090406, end: 20090413
  3. BRONCHOKOD [Suspect]
     Indication: NASOPHARYNGITIS
     Dosage: 1UNIT THREE TIMES PER DAY
     Route: 048
     Dates: start: 20090406, end: 20090413
  4. NECYRANE [Suspect]
     Indication: NASOPHARYNGITIS
     Dosage: 1UNIT THREE TIMES PER DAY
     Route: 045
     Dates: start: 20090406, end: 20090413
  5. NOCTRAN [Suspect]
     Indication: INSOMNIA
     Dosage: 1UNIT PER DAY
     Route: 048
     Dates: end: 20090418
  6. ZYLORIC [Suspect]
     Dosage: 300MG PER DAY
     Route: 048
     Dates: end: 20090418
  7. TORENTAL LP 400 [Suspect]
     Dosage: 800MG SINGLE DOSE
     Route: 048
     Dates: end: 20090418
  8. TANAKAN [Suspect]
     Route: 048
     Dates: end: 20090418
  9. DYNAMISAN [Suspect]
     Indication: ASTHENIA
     Route: 048
     Dates: end: 20090418
  10. VEINAMITOL [Suspect]
     Indication: VENOUS INSUFFICIENCY
     Route: 048
     Dates: end: 20090418
  11. EFFERALGAN [Suspect]
     Indication: NASOPHARYNGITIS
     Route: 048
     Dates: start: 20090406, end: 20090413
  12. SECTRAL [Concomitant]
  13. LEVOTHYROX [Concomitant]
  14. LASIX [Concomitant]
  15. ALDACTONE [Concomitant]
  16. XANAX [Concomitant]

REACTIONS (8)
  - ACUTE GENERALISED EXANTHEMATOUS PUSTULOSIS [None]
  - EYELID OEDEMA [None]
  - GENERALISED ERYTHEMA [None]
  - LEUKOCYTOSIS [None]
  - PREALBUMIN DECREASED [None]
  - RASH ERYTHEMATOUS [None]
  - RASH PUSTULAR [None]
  - RENAL FAILURE ACUTE [None]
